FAERS Safety Report 9865725 (Version 1)
Quarter: 2014Q1

REPORT INFORMATION
  Report Type: Spontaneous
  Country: DE (occurrence: DE)
  Receive Date: 20140203
  Receipt Date: 20140203
  Transmission Date: 20141002
  Serious: Yes (Death)
  Sender: FDA-Public Use
  Company Number: DE-JNJFOC-20140200292

PATIENT
  Age: 73 Year
  Sex: Male

DRUGS (3)
  1. DIPHENHYDRAMINE [Suspect]
     Indication: SUICIDE ATTEMPT
     Dosage: EMPTY PACKAGE WITH 20 PILLS. ASSUMED AMOUNT INGESTED, 1000MG.
     Route: 048
  2. DOXYLAMINE [Suspect]
     Indication: SUICIDE ATTEMPT
     Dosage: EMPTY PACKAGE WITH 40 PILLS. ASSUMED AMOUNT INGESTED, 1000MG.
     Route: 048
  3. DIAZEPAM [Suspect]
     Indication: SUICIDE ATTEMPT
     Dosage: ASSUMED AMOUNT INGESTED WAS 8.1MG/KG
     Route: 065

REACTIONS (1)
  - Toxicity to various agents [Fatal]
